FAERS Safety Report 5159767-X (Version None)
Quarter: 2006Q4

REPORT INFORMATION
  Report Type: 
  Country: None (occurrence: None)
  Receive Date: 20061129
  Receipt Date: 20051117
  Transmission Date: 20070319
  Serious: No
  Sender: FDA-Public Use
  Company Number: US-GLAXOSMITHKLINE-A0583302A

PATIENT
  Age: 50 Year
  Sex: Female

DRUGS (1)
  1. BUPROPION HCL [Suspect]
     Dosage: 150MG PER DAY
     Route: 048
     Dates: start: 20051005

REACTIONS (3)
  - CONTUSION [None]
  - OFF LABEL USE [None]
  - TINNITUS [None]
